FAERS Safety Report 22347104 (Version 1)
Quarter: 2023Q2

REPORT INFORMATION
  Report Type: Spontaneous
  Country: US (occurrence: US)
  Receive Date: 20230520
  Receipt Date: 20230520
  Transmission Date: 20230721
  Serious: Yes (Hospitalization)
  Sender: FDA-Public Use
  Company Number: US-STRIDES ARCOLAB LIMITED-2023SP007245

PATIENT
  Age: 64 Year
  Sex: Female

DRUGS (7)
  1. CALCITRIOL [Suspect]
     Active Substance: CALCITRIOL
     Indication: Hypoparathyroidism
     Dosage: 0.25 MICROGRAM, BID
     Route: 065
  2. CALCITRIOL [Suspect]
     Active Substance: CALCITRIOL
     Dosage: 0.5 MICROGRAM, BID
     Route: 065
  3. CALCITRIOL [Suspect]
     Active Substance: CALCITRIOL
     Dosage: UNK (0.5 MCG AM/ 0.25MCG PM)
     Route: 065
  4. CALCIUM CITRATE [Suspect]
     Active Substance: CALCIUM CITRATE
     Indication: Hypoparathyroidism
     Dosage: 675 MILLIGRAM PER DAY
     Route: 065
  5. CALCIFEDIOL [Suspect]
     Active Substance: CALCIFEDIOL
     Indication: Hypoparathyroidism
     Dosage: 4000 INTERNATIONAL UNIT PER DAY
     Route: 065
  6. CALCITONIN [Concomitant]
     Active Substance: CALCITONIN
     Indication: Product used for unknown indication
     Dosage: UNK
     Route: 065
  7. ZOLEDRONIC ACID [Concomitant]
     Active Substance: ZOLEDRONIC ACID
     Indication: Product used for unknown indication
     Dosage: UNK
     Route: 065

REACTIONS (1)
  - Milk-alkali syndrome [Recovered/Resolved]
